FAERS Safety Report 9597064 (Version 2)
Quarter: 2013Q4

REPORT INFORMATION
  Report Type: Spontaneous
  Country: US (occurrence: US)
  Receive Date: 20131004
  Receipt Date: 20131021
  Transmission Date: 20140711
  Serious: Yes (Other)
  Sender: FDA-Public Use
  Company Number: ALCN2013US004999

PATIENT
  Age: 73 Year
  Sex: Female

DRUGS (4)
  1. SIMBRINZA [Suspect]
     Indication: INTRAOCULAR PRESSURE INCREASED
     Dosage: 1 GTT, TID
     Route: 047
     Dates: start: 20130918
  2. SIMBRINZA [Suspect]
     Dosage: 1 GTT TID
     Route: 047
     Dates: start: 20130927
  3. TRAVATAN Z [Suspect]
     Indication: GLAUCOMA
     Dosage: 1 GTT, QHS
     Route: 047
     Dates: start: 201304
  4. LISINOPRIL [Concomitant]
     Dosage: UNK
     Route: 048

REACTIONS (3)
  - Heart rate increased [Not Recovered/Not Resolved]
  - Blood pressure increased [Not Recovered/Not Resolved]
  - Blood pressure fluctuation [Not Recovered/Not Resolved]
